FAERS Safety Report 9572853 (Version 2)
Quarter: 2013Q4

REPORT INFORMATION
  Report Type: Spontaneous
  Country: US (occurrence: US)
  Receive Date: 20131001
  Receipt Date: 20131023
  Transmission Date: 20140711
  Serious: Yes (Hospitalization, Other)
  Sender: FDA-Public Use
  Company Number: US-ABBVIE-13P-163-1152542-00

PATIENT
  Sex: Female
  Weight: 72.64 kg

DRUGS (7)
  1. DEPAKOTE [Suspect]
     Indication: EPILEPSY
     Dates: start: 19981012, end: 19981111
  2. DILANTIN [Suspect]
     Indication: EPILEPSY
     Dates: start: 19650731, end: 1967
  3. DILANTIN [Suspect]
     Dates: start: 1982
  4. DILANTIN [Suspect]
     Indication: EPILEPSY
  5. PHENYTOIN [Suspect]
     Indication: EPILEPSY
  6. PHENOBARBITAL [Suspect]
     Indication: EPILEPSY
     Dates: start: 19650731
  7. MYSOLINE [Suspect]
     Indication: PRODUCT USED FOR UNKNOWN INDICATION
     Dates: start: 1967, end: 1982

REACTIONS (20)
  - Loss of consciousness [Unknown]
  - Coma [Recovered/Resolved]
  - Ammonia increased [Recovered/Resolved]
  - Convulsion [Recovered/Resolved]
  - Skull fracture [Recovered/Resolved]
  - Laceration [Recovered/Resolved]
  - Osteoporosis [Unknown]
  - Lower limb fracture [Recovered/Resolved]
  - Foot fracture [Recovered/Resolved]
  - Gait disturbance [Not Recovered/Not Resolved]
  - Gait disturbance [Not Recovered/Not Resolved]
  - Memory impairment [Not Recovered/Not Resolved]
  - Emergency care [Unknown]
  - Drug level above therapeutic [Unknown]
  - Hypoaesthesia [Unknown]
  - Hypoaesthesia [Recovering/Resolving]
  - Fatigue [Unknown]
  - Fall [Unknown]
  - Spinal fracture [Unknown]
  - Multiple fractures [Unknown]
